FAERS Safety Report 7065991-1 (Version None)
Quarter: 2010Q4

REPORT INFORMATION
  Report Type: 
  Country: None (occurrence: None)
  Receive Date: 20101027
  Receipt Date: 20100917
  Transmission Date: 20110411
  Serious: Yes (Other)
  Sender: FDA-Public Use
  Company Number: HQWYE167613OCT03

PATIENT
  Sex: Female
  Weight: 69.46 kg

DRUGS (6)
  1. PREMPRO [Suspect]
     Indication: HORMONE REPLACEMENT THERAPY
     Dosage: DAILY
     Route: 048
  2. OGEN [Suspect]
     Dosage: UNKNOWN
  3. CYCRIN [Suspect]
     Dosage: UNKNOWN
  4. MEDROXYPROGESTERONE [Suspect]
     Dosage: UNKNOWN
  5. MEDROXYPROGESTERONE ACETATE [Suspect]
     Indication: HORMONE REPLACEMENT THERAPY
     Dosage: DAILY
     Route: 048
  6. ESTRATEST H.S. [Suspect]
     Dosage: UNKNOWN

REACTIONS (2)
  - BREAST CANCER [None]
  - DRUG INEFFECTIVE [None]
